FAERS Safety Report 7115106-6 (Version None)
Quarter: 2010Q4

REPORT INFORMATION
  Report Type: 
  Country: None (occurrence: None)
  Receive Date: 20101122
  Receipt Date: 20101022
  Transmission Date: 20110411
  Serious: No
  Sender: FDA-Public Use
  Company Number: BE-ACTELION-A-CH2010-39126

PATIENT
  Sex: Female

DRUGS (1)
  1. TRACLEER [Suspect]
     Indication: PULMONARY ARTERIAL HYPERTENSION
     Dosage: UNK , UNK
     Route: 048
     Dates: start: 20091201

REACTIONS (1)
  - NO ADVERSE EVENT [None]
